FAERS Safety Report 7711668-6 (Version None)
Quarter: 2011Q3

REPORT INFORMATION
  Report Type: 
  Country: None (occurrence: None)
  Receive Date: 20110826
  Receipt Date: 20110728
  Transmission Date: 20111222
  Serious: Yes (Other)
  Sender: FDA-Public Use
  Company Number: US-BRISTOL-MYERS SQUIBB COMPANY-15911415

PATIENT
  Age: 53 Year
  Sex: Female

DRUGS (7)
  1. COZAAR [Concomitant]
  2. LEXAPRO [Concomitant]
  3. METFORMIN HCL [Concomitant]
  4. LOVASTATIN [Concomitant]
  5. ONGLYZA [Suspect]
     Indication: DIABETES MELLITUS
     Route: 048
     Dates: start: 20110629, end: 20110706
  6. ASPIRIN [Concomitant]
  7. GLYBURIDE [Concomitant]

REACTIONS (1)
  - HYPERSENSITIVITY [None]
